FAERS Safety Report 4532523-9 (Version None)
Quarter: 2004Q4

REPORT INFORMATION
  Report Type: 
  Country: None (occurrence: None)
  Receive Date: 20041206
  Receipt Date: 20041020
  Transmission Date: 20050328
  Serious: No
  Sender: FDA-Public Use
  Company Number: USA041081768

PATIENT
  Age: 70 Year
  Sex: Male

DRUGS (3)
  1. ALIMTA [Suspect]
     Dates: start: 20040801
  2. VITAMIN SUPPLEMENTATION [Concomitant]
  3. DEXAMETHASONE [Concomitant]

REACTIONS (1)
  - RASH [None]
